FAERS Safety Report 8789560 (Version 1)
Quarter: 2012Q4

REPORT INFORMATION
  Report Type: Spontaneous
  Country: US (occurrence: None)
  Receive Date: 20120905
  Receipt Date: 20120905
  Transmission Date: 20130627
  Serious: Yes (Other)
  Sender: FDA-Public Use
  Company Number: FK201202547

PATIENT
  Age: 78 Year
  Sex: Female
  Weight: 62 kg

DRUGS (2)
  1. CARBOPLATIN [Suspect]
     Indication: OVARIAN CANCER
     Dates: start: 20111222, end: 20111222
  2. MORAB-003 [Suspect]
     Dates: start: 20111222, end: 20111222

REACTIONS (5)
  - Pulmonary embolism [None]
  - Blood glucose increased [None]
  - Haemoglobin decreased [None]
  - Neutrophil count decreased [None]
  - Red blood cell count decreased [None]
